FAERS Safety Report 4682956-5 (Version None)
Quarter: 2005Q2

REPORT INFORMATION
  Report Type: 
  Country: None (occurrence: None)
  Receive Date: 20050602
  Receipt Date: 20050317
  Transmission Date: 20051028
  Serious: No
  Sender: FDA-Public Use
  Company Number: USA050393547

PATIENT
  Age: 75 Year
  Sex: Female

DRUGS (7)
  1. CYMBALTA [Suspect]
     Indication: BURNING SENSATION
     Dosage: 60 MG DAY
     Dates: start: 20050315
  2. COZAAR (LOSAR5TAN POTASSIUM) [Concomitant]
  3. ZYRTEC [Concomitant]
  4. ALLEGRA [Concomitant]
  5. DIGOXIN [Concomitant]
  6. AMARYL [Concomitant]
  7. ACETYLSALICYLIC ACID SRT [Concomitant]

REACTIONS (1)
  - SWOLLEN TONGUE [None]
